FAERS Safety Report 4768708-6 (Version None)
Quarter: 2005Q3

REPORT INFORMATION
  Report Type: 
  Country: None (occurrence: None)
  Receive Date: 20050914
  Receipt Date: 20050805
  Transmission Date: 20060218
  Serious: Yes (Life-Threatening, Disabling, Other)
  Sender: FDA-Public Use
  Company Number: US-GLAXOSMITHKLINE-A0569127A

PATIENT
  Age: 28 Year
  Sex: Female

DRUGS (14)
  1. PAXIL CR [Suspect]
     Indication: DEPRESSION
     Dosage: 75MG PER DAY
     Route: 048
  2. PAXIL [Suspect]
     Indication: DEPRESSION
     Dosage: 60MG PER DAY
     Route: 048
  3. ATIVAN [Concomitant]
  4. SYNTHROID [Concomitant]
  5. LANTUS [Concomitant]
  6. HUMULIN 70/30 [Concomitant]
  7. OXYBUTYNIN [Concomitant]
  8. PHENERGAN [Concomitant]
  9. BENTYL [Concomitant]
  10. ALBUTEROL [Concomitant]
  11. SINGULAIR [Concomitant]
  12. ALLEGRA [Concomitant]
  13. IBUPROFEN [Concomitant]
  14. ORTHO TRI-CYCLEN [Concomitant]

REACTIONS (11)
  - AGITATION [None]
  - CONDITION AGGRAVATED [None]
  - CONVERSION DISORDER [None]
  - CRYING [None]
  - DEPRESSION [None]
  - DEREALISATION [None]
  - DISSOCIATION [None]
  - FEELING OF DESPAIR [None]
  - HAIR COLOUR CHANGES [None]
  - HYPOAESTHESIA [None]
  - PRESCRIBED OVERDOSE [None]
